FAERS Safety Report 16113198 (Version 3)
Quarter: 2019Q3

REPORT INFORMATION
  Report Type: Spontaneous
  Country: US (occurrence: JP)
  Receive Date: 20190325
  Receipt Date: 20190801
  Transmission Date: 20191004
  Serious: Yes (Other)
  Sender: FDA-Public Use
  Company Number: JP-ALLERGAN-1904930US

PATIENT
  Sex: Male

DRUGS (4)
  1. BOTOX [Suspect]
     Active Substance: ONABOTULINUMTOXINA
     Indication: MUSCLE SPASMS
     Dosage: UNK UNK, SINGLE
     Route: 030
     Dates: start: 20190612, end: 20190612
  2. BOTOX [Suspect]
     Active Substance: ONABOTULINUMTOXINA
     Dosage: 15-16 (DOSES), SINGLE
     Route: 030
     Dates: start: 20190308, end: 20190308
  3. BOTOX [Suspect]
     Active Substance: ONABOTULINUMTOXINA
     Dosage: UNK UNK, SINGLE
     Route: 030
     Dates: start: 20181207, end: 20181207
  4. BOTOX [Suspect]
     Active Substance: ONABOTULINUMTOXINA
     Dosage: UNK UNK, SINGLE
     Route: 030

REACTIONS (10)
  - Internal haemorrhage [Recovering/Resolving]
  - Pain [Not Recovered/Not Resolved]
  - Decreased activity [Not Recovered/Not Resolved]
  - Hypertonia [Not Recovered/Not Resolved]
  - Foot deformity [Unknown]
  - Therapeutic product effect variable [Unknown]
  - Depressed mood [Unknown]
  - Dysarthria [Not Recovered/Not Resolved]
  - Therapeutic product effect incomplete [Unknown]
  - Angiopathy [Recovering/Resolving]

NARRATIVE: CASE EVENT DATE: 2019
